FAERS Safety Report 10975460 (Version 1)
Quarter: 2015Q2

REPORT INFORMATION
  Report Type: Spontaneous
  Country: US (occurrence: US)
  Receive Date: 20150401
  Receipt Date: 20150401
  Transmission Date: 20150821
  Serious: Yes (Other)
  Sender: FDA-Public Use
  Company Number: US-BAYER-2015-065798

PATIENT
  Age: 49 Year
  Sex: Male
  Weight: 121 kg

DRUGS (5)
  1. METOPROLOL [Concomitant]
     Active Substance: METOPROLOL
  2. PLAVIX [Concomitant]
     Active Substance: CLOPIDOGREL BISULFATE
  3. BAYER CHEWABLE LOW DOSE ASPIRIN ORANGE FLAVORED [Suspect]
     Active Substance: ASPIRIN
     Indication: ISCHAEMIC HEART DISEASE PROPHYLAXIS
     Dosage: 1 DF, QD
     Route: 048
     Dates: start: 201304, end: 20150322
  4. LISINOPRIL. [Concomitant]
     Active Substance: LISINOPRIL
  5. BAYER LOW DOSE [Suspect]
     Active Substance: ASPIRIN
     Indication: ISCHAEMIC HEART DISEASE PROPHYLAXIS
     Dosage: 1 DF, QD
     Route: 048
     Dates: start: 20150323

REACTIONS (3)
  - Oesophageal pain [Not Recovered/Not Resolved]
  - Myocardial infarction [Recovered/Resolved]
  - Abdominal discomfort [Not Recovered/Not Resolved]

NARRATIVE: CASE EVENT DATE: 20141015
